FAERS Safety Report 17525419 (Version 1)
Quarter: 2020Q1

REPORT INFORMATION
  Report Type: Spontaneous
  Country: CN (occurrence: CN)
  Receive Date: 20200311
  Receipt Date: 20200311
  Transmission Date: 20200409
  Serious: Yes (Other)
  Sender: FDA-Public Use
  Company Number: CN-ROCHE-2565163

PATIENT
  Age: 55 Year
  Sex: Male

DRUGS (6)
  1. CISPLATIN. [Concomitant]
     Active Substance: CISPLATIN
     Indication: ADENOCARCINOMA
     Route: 065
     Dates: start: 20190326, end: 20190717
  2. PEMETREXED. [Concomitant]
     Active Substance: PEMETREXED
     Indication: ADENOCARCINOMA
     Route: 065
     Dates: start: 20190326, end: 20190717
  3. AVASTIN [Suspect]
     Active Substance: BEVACIZUMAB
     Indication: ADENOCARCINOMA
     Route: 065
     Dates: start: 20190326, end: 20190717
  4. NEDAPLATIN [Concomitant]
     Active Substance: NEDAPLATIN
     Indication: ADENOCARCINOMA
     Route: 065
     Dates: start: 20191220
  5. CATEQUENTINIB. [Concomitant]
     Active Substance: CATEQUENTINIB
     Indication: ADENOCARCINOMA
     Route: 048
     Dates: start: 20200115
  6. GEMCITABINE. [Concomitant]
     Active Substance: GEMCITABINE
     Indication: ADENOCARCINOMA
     Route: 065
     Dates: start: 20191220

REACTIONS (1)
  - Bone marrow failure [Unknown]
